FAERS Safety Report 19662062 (Version 1)
Quarter: 2021Q3

REPORT INFORMATION
  Report Type: Spontaneous
  Country: GB (occurrence: GB)
  Receive Date: 20210805
  Receipt Date: 20210805
  Transmission Date: 20211014
  Serious: Yes (Life-Threatening)
  Sender: FDA-Public Use
  Company Number: GB-MYLANLABS-2021M1047689

PATIENT
  Age: 65 Year
  Weight: 65.4 kg

DRUGS (4)
  1. ROCURONIUM [Suspect]
     Active Substance: ROCURONIUM BROMIDE
     Indication: ILL-DEFINED DISORDER
     Dosage: UNK
     Route: 042
  2. AMOXICILLIN/CLAVULANIC ACID [Suspect]
     Active Substance: AMOXICILLIN\CLAVULANIC ACID
     Indication: ANAPHYLACTIC REACTION
     Dosage: 625 MILLIGRAM
     Route: 048
  3. OMEPRAZOLE. [Concomitant]
     Active Substance: OMEPRAZOLE
     Indication: ILL-DEFINED DISORDER
  4. TIOTROPIUM [Concomitant]
     Active Substance: TIOTROPIUM
     Indication: ILL-DEFINED DISORDER
     Dosage: UNK

REACTIONS (2)
  - Off label use [Unknown]
  - Acute cardiac event [Recovered/Resolved]
